FAERS Safety Report 12116118 (Version 1)
Quarter: 2016Q1

REPORT INFORMATION
  Report Type: Spontaneous
  Country: US (occurrence: US)
  Receive Date: 20160225
  Receipt Date: 20160225
  Transmission Date: 20160526
  Serious: No
  Sender: FDA-Public Use
  Company Number: US-WATSON-2015-18169

PATIENT
  Sex: Female

DRUGS (2)
  1. TEMAZEPAM (AELLC) [Suspect]
     Active Substance: TEMAZEPAM
     Indication: PRODUCT USED FOR UNKNOWN INDICATION
     Dosage: 1/3 OF CAPSULE
     Route: 065
  2. TEMAZEPAM (AELLC) [Suspect]
     Active Substance: TEMAZEPAM
     Dosage: UNK, UNKNOWN
     Route: 065

REACTIONS (3)
  - Drug administration error [Unknown]
  - Incorrect drug administration duration [Unknown]
  - Drug effect increased [Unknown]
